FAERS Safety Report 7997488-6 (Version None)
Quarter: 2011Q4

REPORT INFORMATION
  Report Type: 
  Country: None (occurrence: None)
  Receive Date: 20111221
  Receipt Date: 20111221
  Transmission Date: 20120403
  Serious: Yes (Other)
  Sender: FDA-Public Use
  Company Number: None

PATIENT
  Sex: Female
  Weight: 58.967 kg

DRUGS (3)
  1. NEURONTIN [Suspect]
     Indication: POST PROCEDURAL COMPLICATION
     Dosage: 600 MG
     Route: 048
     Dates: start: 20100115, end: 20111219
  2. NEURONTIN [Suspect]
     Indication: NEUROPATHY PERIPHERAL
     Dosage: 600 MG
     Route: 048
     Dates: start: 20100115, end: 20111219
  3. NEURONTIN [Suspect]
     Indication: PAIN
     Dosage: 600 MG
     Route: 048
     Dates: start: 20100115, end: 20111219

REACTIONS (4)
  - PHYSICAL ASSAULT [None]
  - PAIN [None]
  - CONDITION AGGRAVATED [None]
  - ADVERSE EVENT [None]
